FAERS Safety Report 20306248 (Version 1)
Quarter: 2022Q1

REPORT INFORMATION
  Report Type: Report from Study
  Country: US (occurrence: US)
  Receive Date: 20220106
  Receipt Date: 20220106
  Transmission Date: 20220423
  Serious: Yes (Death, Other)
  Sender: FDA-Public Use
  Company Number: US-TAKEDA-2021TUS068694

PATIENT
  Sex: Male
  Weight: 77 kg

DRUGS (1)
  1. MOBOCERTINIB [Suspect]
     Active Substance: MOBOCERTINIB
     Indication: Lung neoplasm malignant
     Dosage: 160 MILLIGRAM, QD
     Route: 065
     Dates: start: 20211018

REACTIONS (4)
  - Death [Fatal]
  - Fall [Unknown]
  - Pleural effusion [Unknown]
  - Asthenia [Unknown]
